FAERS Safety Report 5525456-2 (Version None)
Quarter: 2007Q4

REPORT INFORMATION
  Report Type: 
  Country: None (occurrence: None)
  Receive Date: 20071119
  Receipt Date: 20071105
  Transmission Date: 20080405
  Serious: Yes (Hospitalization)
  Sender: FDA-Public Use
  Company Number: GXKR2007JP09506

PATIENT
  Age: 41 Year
  Sex: Male

DRUGS (6)
  1. CLOMIPRAMINE HCL [Suspect]
     Indication: OBSESSIVE-COMPULSIVE DISORDER
     Dosage: 50 MG, QD
  2. TEPRENONE (TEPRENONE) [Concomitant]
  3. VALPROIC ACID [Concomitant]
  4. CARBAMAZEPINE [Concomitant]
  5. PEROSPIRONE (PEROSPIRONE) [Concomitant]
  6. FUROSEMIDE [Concomitant]

REACTIONS (8)
  - ARTHRALGIA [None]
  - DIARRHOEA [None]
  - DRUG HYPERSENSITIVITY [None]
  - HAEMODIALYSIS [None]
  - LYMPHOCYTE COUNT DECREASED [None]
  - NEPHRITIS INTERSTITIAL [None]
  - RED BLOOD CELL COUNT DECREASED [None]
  - RENAL FAILURE ACUTE [None]
